FAERS Safety Report 16835174 (Version 2)
Quarter: 2019Q4

REPORT INFORMATION
  Report Type: Spontaneous
  Country: US (occurrence: US)
  Receive Date: 20190920
  Receipt Date: 20191114
  Transmission Date: 20200122
  Serious: Yes (Other)
  Sender: FDA-Public Use
  Company Number: US-SA-2019SA258614

PATIENT
  Age: 53 Year
  Sex: Female
  Weight: 70.7 kg

DRUGS (4)
  1. TAXOTERE [Suspect]
     Active Substance: DOCETAXEL
     Dosage: UNK UNK, QCY
     Route: 042
     Dates: start: 2008, end: 2008
  2. LOSARTAN. [Concomitant]
     Active Substance: LOSARTAN
  3. TAXOTERE [Suspect]
     Active Substance: DOCETAXEL
     Indication: BREAST CANCER FEMALE
     Dosage: UNK UNK, QCY
     Route: 042
     Dates: start: 2008, end: 2008
  4. AMLODIPINE [Concomitant]
     Active Substance: AMLODIPINE BESYLATE

REACTIONS (6)
  - Emotional distress [Unknown]
  - Alopecia [Not Recovered/Not Resolved]
  - Pain [Unknown]
  - Anxiety [Unknown]
  - Psychological trauma [Unknown]
  - Impaired quality of life [Unknown]

NARRATIVE: CASE EVENT DATE: 2010
